FAERS Safety Report 22358936 (Version 1)
Quarter: 2023Q2

REPORT INFORMATION
  Report Type: Spontaneous
  Country: US (occurrence: US)
  Receive Date: 20230524
  Receipt Date: 20230524
  Transmission Date: 20230722
  Serious: No
  Sender: FDA-Public Use
  Company Number: US-APOTEX-2023AP004524

PATIENT
  Sex: Male

DRUGS (1)
  1. OFLOXACIN [Suspect]
     Active Substance: OFLOXACIN
     Indication: Excessive cerumen production
     Dosage: 10 GTT DROPS, BID
     Route: 001

REACTIONS (6)
  - Product closure removal difficult [Unknown]
  - Off label use [Unknown]
  - Wrong technique in product usage process [Unknown]
  - Product label issue [Unknown]
  - Product communication issue [Unknown]
  - No adverse event [Unknown]

NARRATIVE: CASE EVENT DATE: 20230201
